FAERS Safety Report 16354360 (Version 1)
Quarter: 2019Q2

REPORT INFORMATION
  Report Type: Spontaneous
  Country: CN (occurrence: CN)
  Receive Date: 20190524
  Receipt Date: 20190524
  Transmission Date: 20190711
  Serious: Yes (Hospitalization)
  Sender: FDA-Public Use
  Company Number: CN-ELI_LILLY_AND_COMPANY-CN201905010443

PATIENT
  Age: 44 Year
  Sex: Female
  Weight: 56 kg

DRUGS (4)
  1. ERBITUX [Suspect]
     Active Substance: CETUXIMAB
     Indication: NASOPHARYNGEAL CANCER
     Dosage: 250 MG/M2, UNK
     Route: 040
  2. CISPLATIN. [Suspect]
     Active Substance: CISPLATIN
     Indication: NASOPHARYNGEAL CANCER
     Dosage: 60 MG, DAILY
     Route: 041
  3. DOCETAXEL. [Suspect]
     Active Substance: DOCETAXEL
     Indication: NASOPHARYNGEAL CANCER
     Dosage: 115 MG, DAILY
     Route: 041
  4. CISPLATIN. [Suspect]
     Active Substance: CISPLATIN
     Dosage: 55 MG, DAILY
     Route: 041

REACTIONS (2)
  - Bone marrow failure [Recovering/Resolving]
  - Diarrhoea [Recovering/Resolving]
